FAERS Safety Report 8001140-0 (Version None)
Quarter: 2011Q4

REPORT INFORMATION
  Report Type: 
  Country: None (occurrence: None)
  Receive Date: 20111222
  Receipt Date: 20111219
  Transmission Date: 20120403
  Serious: Yes (Other)
  Sender: FDA-Public Use
  Company Number: GB-AMGEN-GBRCT2011058337

PATIENT
  Age: 74 Year
  Sex: Male

DRUGS (3)
  1. BLINDED DARBEPOETIN ALFA [Suspect]
     Indication: CARDIAC FAILURE
     Route: 058
     Dates: start: 20071210
  2. BLINDED DARBEPOETIN ALFA [Suspect]
     Route: 058
     Dates: start: 20071210
  3. PLACEBO [Suspect]
     Indication: CARDIAC FAILURE
     Route: 058
     Dates: start: 20071210

REACTIONS (1)
  - INTRACARDIAC THROMBUS [None]
